FAERS Safety Report 4742532-2 (Version None)
Quarter: 2005Q3

REPORT INFORMATION
  Report Type: 
  Country: None (occurrence: None)
  Receive Date: 20050808
  Receipt Date: 20050726
  Transmission Date: 20060218
  Serious: Yes (Other)
  Sender: FDA-Public Use
  Company Number: USA041286886

PATIENT
  Age: 62 Year
  Sex: Female

DRUGS (3)
  1. FORTEO [Suspect]
     Dosage: 20 UG DAY
     Dates: start: 20041223
  2. CALCIUM AND VITAMIN D [Concomitant]
  3. FOSAMAX [Concomitant]

REACTIONS (4)
  - HAEMORRHAGE [None]
  - NAUSEA [None]
  - NEPHROLITHIASIS [None]
  - PHARMACEUTICAL PRODUCT COMPLAINT [None]
